FAERS Safety Report 21405744 (Version 1)
Quarter: 2022Q4

REPORT INFORMATION
  Report Type: Report from Study
  Country: US (occurrence: US)
  Receive Date: 20221004
  Receipt Date: 20221004
  Transmission Date: 20230113
  Serious: Yes (Hospitalization)
  Sender: FDA-Public Use
  Company Number: US-NOVARTISPH-NVSC2022US220617

PATIENT
  Age: 46 Year
  Sex: Female

DRUGS (1)
  1. GILENYA [Suspect]
     Active Substance: FINGOLIMOD HYDROCHLORIDE
     Indication: Relapsing-remitting multiple sclerosis
     Dosage: 0.5 MG, QD
     Route: 048
     Dates: start: 20160106

REACTIONS (3)
  - Hypoaesthesia [Recovering/Resolving]
  - Paraesthesia [Recovering/Resolving]
  - Product availability issue [Unknown]

NARRATIVE: CASE EVENT DATE: 20220916
